FAERS Safety Report 18607789 (Version 3)
Quarter: 2021Q1

REPORT INFORMATION
  Report Type: Spontaneous
  Country: IT (occurrence: IT)
  Receive Date: 20201211
  Receipt Date: 20210120
  Transmission Date: 20210419
  Serious: Yes (Death, Hospitalization)
  Sender: FDA-Public Use
  Company Number: IT-CELGENEUS-ITA-20201202847

PATIENT
  Age: 72 Year
  Sex: Male
  Weight: 68 kg

DRUGS (1)
  1. ENASIDENIB [Suspect]
     Active Substance: ENASIDENIB
     Indication: ACUTE MYELOID LEUKAEMIA
     Dosage: UNKNOWN DOSE
     Route: 048
     Dates: start: 20200910, end: 20200920

REACTIONS (4)
  - Septic shock [Fatal]
  - Pneumonia fungal [Fatal]
  - Escherichia sepsis [Fatal]
  - COVID-19 [Fatal]

NARRATIVE: CASE EVENT DATE: 20201109
